FAERS Safety Report 8218897-6 (Version None)
Quarter: 2012Q1

REPORT INFORMATION
  Report Type: 
  Country: None (occurrence: None)
  Receive Date: 20120319
  Receipt Date: 20120316
  Transmission Date: 20120608
  Serious: Yes (Other)
  Sender: FDA-Public Use
  Company Number: PHFR2011IE006777

PATIENT
  Sex: Female

DRUGS (14)
  1. CLOZARIL [Suspect]
     Indication: SCHIZOPHRENIA
     Route: 048
     Dates: start: 19990319
  2. SERTRALINE HYDROCHLORIDE [Concomitant]
     Dosage: 50 MG
     Route: 048
  3. CLOZARIL [Suspect]
     Dosage: 175 MG
     Route: 048
  4. ZOPLICONE [Concomitant]
     Dosage: 3.75 MG
  5. SPIRIVA [Concomitant]
     Dosage: 1 DF, 1 PUFF
  6. QWELLS [Concomitant]
  7. CLOZARIL [Suspect]
     Dosage: 300 MG, QD
     Route: 048
  8. HALOPERIDOL [Concomitant]
     Dosage: 2 MG, NOCTE
     Route: 048
  9. SYMBICORT [Concomitant]
     Dosage: 2 DF, 2 PUFF
  10. FUROSEMIDE [Concomitant]
     Dosage: 40 MG, BID
  11. VERTIGON [Concomitant]
     Dosage: 60 MG, NOCTE
  12. CLOZARIL [Suspect]
     Dosage: 325 MG, QD
     Route: 048
  13. CLOZARIL [Suspect]
     Dosage: 100 MG
     Route: 048
  14. CITALOPRAM HYDROBROMIDE [Concomitant]
     Dosage: 30 MG, QD

REACTIONS (4)
  - CONVULSION [None]
  - CHRONIC OBSTRUCTIVE PULMONARY DISEASE [None]
  - MENTAL DISORDER [None]
  - ANTIPSYCHOTIC DRUG LEVEL INCREASED [None]
